FAERS Safety Report 8966462 (Version 1)
Quarter: 2012Q4

REPORT INFORMATION
  Report Type: 
  Country: IT (occurrence: IT)
  Receive Date: 20121214
  Receipt Date: 20121214
  Transmission Date: 20130627
  Serious: Yes (Other)
  Sender: FDA-Public Use
  Company Number: IT-TEVA-375368ISR

PATIENT
  Age: 43 Year
  Sex: Male
  Weight: 80 kg

DRUGS (1)
  1. CEFTRIAXONE [Suspect]
     Dosage: 1 Gram Daily;
     Route: 030
     Dates: start: 20121001, end: 20121001

REACTIONS (2)
  - Respiratory failure [Recovered/Resolved]
  - Rash [Recovered/Resolved]
